FAERS Safety Report 16329679 (Version 1)
Quarter: 2019Q2

REPORT INFORMATION
  Report Type: Spontaneous
  Country: US (occurrence: US)
  Receive Date: 20190520
  Receipt Date: 20190520
  Transmission Date: 20190711
  Serious: No
  Sender: FDA-Public Use
  Company Number: US-TEVA-2018-US-918943

PATIENT
  Sex: Male

DRUGS (2)
  1. CLONIDINE. [Suspect]
     Active Substance: CLONIDINE
     Indication: SOMATOTROPIN STIMULATION TEST
     Dosage: MAXIMUM DOSE 0.1MG
     Route: 048
  2. GLUCAGON. [Suspect]
     Active Substance: GLUCAGON
     Indication: SOMATOTROPIN STIMULATION TEST
     Dosage: MAXIMUM DOSE 1MG
     Route: 030

REACTIONS (3)
  - Vomiting [Unknown]
  - Nausea [Unknown]
  - Dizziness [Unknown]
